FAERS Safety Report 23682682 (Version 1)
Quarter: 2024Q1

REPORT INFORMATION
  Report Type: Spontaneous
  Country: US (occurrence: None)
  Receive Date: 20240327
  Receipt Date: 20240327
  Transmission Date: 20240409
  Serious: Yes (Disabling, Other)
  Sender: FDA-Public Use
  Company Number: None

PATIENT
  Age: 67 Year
  Sex: Female

DRUGS (6)
  1. OZEMPIC [Suspect]
     Active Substance: SEMAGLUTIDE
     Indication: Type 2 diabetes mellitus
     Dosage: 1 INJECTION WEEKLY SUBCUTANEOUS INJECTION?
     Route: 058
  2. OZEMPIC [Suspect]
     Active Substance: SEMAGLUTIDE
     Indication: Glycosylated haemoglobin
  3. DEVICE [Concomitant]
     Active Substance: DEVICE
  4. LYMPHEDEMA PUMP LEVOXYL [Concomitant]
  5. SYNTHROID [Concomitant]
     Active Substance: LEVOTHYROXINE SODIUM
  6. TRIAMTERENE HYDROCHOLORTHIAZIDE [Concomitant]

REACTIONS (8)
  - Nausea [None]
  - Vomiting [None]
  - Diarrhoea [None]
  - Abdominal pain [None]
  - Asthenia [None]
  - Fatigue [None]
  - Discoloured vomit [None]
  - Faeces discoloured [None]

NARRATIVE: CASE EVENT DATE: 20240323
